FAERS Safety Report 14946778 (Version 1)
Quarter: 2018Q2

REPORT INFORMATION
  Report Type: Spontaneous
  Country: JP (occurrence: JP)
  Receive Date: 20180529
  Receipt Date: 20180529
  Transmission Date: 20180711
  Serious: Yes (Other)
  Sender: FDA-Public Use
  Company Number: JP-TEVA-2018-JP-897790

PATIENT
  Age: 43 Year
  Sex: Female

DRUGS (5)
  1. AMOXICILLIN. [Suspect]
     Active Substance: AMOXICILLIN
     Indication: HELICOBACTER INFECTION
     Dosage: 1500 MILLIGRAM DAILY; ADMINISTERED AS PRIMARY TRIPLET THERAPY AND FOLLOWED BY SECONDARY ERADICATION
     Route: 065
  2. OMEPRAZOLE. [Concomitant]
     Active Substance: OMEPRAZOLE
     Indication: HELICOBACTER INFECTION
     Dosage: 40 MILLIGRAM DAILY; ADMINISTERED DURING PRIMARY TRIPLET THERAPY AND FOLLOWED BY SECONDARY ERADICATIO
     Route: 065
  3. CLARITHROMYCIN. [Suspect]
     Active Substance: CLARITHROMYCIN
     Indication: HELICOBACTER INFECTION
     Dosage: 800 MILLIGRAM DAILY; ADMINISTERED AS PRIMARY TRIPLET THERAPY
     Route: 065
  4. METRONIDAZOLE. [Suspect]
     Active Substance: METRONIDAZOLE
     Indication: HELICOBACTER INFECTION
     Dosage: 500 MILLIGRAM DAILY; ADMINISTERED AS SECONDARY ERADICATION THERAPY
     Route: 065
  5. METRONIDAZOLE. [Suspect]
     Active Substance: METRONIDAZOLE
     Indication: HELICOBACTER INFECTION
     Dosage: 500MG 3 TIMES DAILY FOR CLOSTRIDIUM DIFFICILE INFECTION.
     Route: 065

REACTIONS (5)
  - Nausea [Unknown]
  - Pseudomembranous colitis [Recovered/Resolved]
  - Vomiting [Unknown]
  - Clostridium difficile colitis [Recovered/Resolved]
  - Haematochezia [Recovered/Resolved]
